FAERS Safety Report 18337908 (Version 1)
Quarter: 2020Q4

REPORT INFORMATION
  Report Type: Report from Study
  Country: BE (occurrence: BE)
  Receive Date: 20201002
  Receipt Date: 20201002
  Transmission Date: 20210113
  Serious: Yes (Death, Hospitalization, Other)
  Sender: FDA-Public Use
  Company Number: BE-BAUSCH-BL-2020-027996

PATIENT
  Sex: Male
  Weight: 69 kg

DRUGS (3)
  1. DEXAMETHASONE. [Suspect]
     Active Substance: DEXAMETHASONE
     Indication: DIFFUSE LARGE B-CELL LYMPHOMA
     Dosage: UNK
     Route: 065
     Dates: start: 20190327, end: 20190327
  2. AXICABTAGENE CILOLEUCEL [Suspect]
     Active Substance: AXICABTAGENE CILOLEUCEL
     Indication: DIFFUSE LARGE B-CELL LYMPHOMA
     Dosage: FORM OF ADMINISTRATION: INTRAVENOUS
     Route: 042
  3. BEAM [Suspect]
     Active Substance: SODIUM FLUORIDE
     Indication: DIFFUSE LARGE B-CELL LYMPHOMA
     Dosage: UNK
     Route: 065
     Dates: start: 20190327, end: 20190327

REACTIONS (4)
  - Diffuse large B-cell lymphoma [Fatal]
  - Urinary tract infection [Not Recovered/Not Resolved]
  - Citrobacter sepsis [Not Recovered/Not Resolved]
  - Intestinal obstruction [Fatal]

NARRATIVE: CASE EVENT DATE: 201904
